FAERS Safety Report 7097118-4 (Version None)
Quarter: 2010Q4

REPORT INFORMATION
  Report Type: 
  Country: None (occurrence: None)
  Receive Date: 20101111
  Receipt Date: 20101028
  Transmission Date: 20110411
  Serious: Yes (Hospitalization)
  Sender: FDA-Public Use
  Company Number: US-CUBIST-2010S1001028

PATIENT
  Age: 63 Year
  Sex: Male
  Weight: 127.5 kg

DRUGS (17)
  1. CUBICIN [Suspect]
     Indication: OSTEOMYELITIS
     Route: 042
     Dates: start: 20101011, end: 20101018
  2. CUBICIN [Suspect]
     Route: 042
     Dates: start: 20101011, end: 20101018
  3. FUROSEMIDE [Concomitant]
  4. POTASSIUM CHLORIDE [Concomitant]
  5. LISINOPRIL AND HYDROCHLOROTHIAZIDE [Concomitant]
  6. LISINOPRIL AND HYDROCHLOROTHIAZIDE [Concomitant]
  7. ASPIRIN [Concomitant]
  8. COREG [Concomitant]
  9. OMEPRAZOLE [Concomitant]
  10. EFFEXOR XR [Concomitant]
  11. METFORMIN [Concomitant]
     Route: 048
  12. LIPITOR [Concomitant]
     Route: 048
  13. TRAZODONE [Concomitant]
     Route: 048
  14. NOVOLOG [Concomitant]
     Dosage: DOSE UNIT:40
  15. LANTUS [Concomitant]
     Dosage: DOSE UNIT:60
  16. LORTAB [Concomitant]
     Indication: PAIN
     Route: 048
  17. LORTAB [Concomitant]
     Route: 048

REACTIONS (1)
  - PULMONARY OEDEMA [None]
